FAERS Safety Report 24640214 (Version 3)
Quarter: 2025Q3

REPORT INFORMATION
  Report Type: Spontaneous
  Country: US (occurrence: US)
  Receive Date: 20241120
  Receipt Date: 20250925
  Transmission Date: 20251021
  Serious: No
  Sender: SANOFI AVENTIS
  Company Number: US-SA-2024SA334655

PATIENT
  Age: 58 Year
  Sex: Male

DRUGS (1)
  1. DUPIXENT [Suspect]
     Active Substance: DUPILUMAB
     Indication: Nasal polyps
     Dosage: 300 MG, QOW
     Route: 058
     Dates: start: 20240920

REACTIONS (7)
  - Joint stiffness [Unknown]
  - Rhinorrhoea [Not Recovered/Not Resolved]
  - Nasopharyngitis [Unknown]
  - Nasal congestion [Not Recovered/Not Resolved]
  - Arthralgia [Unknown]
  - Eye pruritus [Not Recovered/Not Resolved]
  - Condition aggravated [Unknown]

NARRATIVE: CASE EVENT DATE: 20240101
